FAERS Safety Report 21397112 (Version 1)
Quarter: 2022Q3

REPORT INFORMATION
  Report Type: Spontaneous
  Country: US (occurrence: None)
  Receive Date: 20220929
  Receipt Date: 20220929
  Transmission Date: 20221026
  Serious: Yes (Hospitalization)
  Sender: FDA-Public Use
  Company Number: None

PATIENT
  Sex: Female

DRUGS (10)
  1. TACROLIMUS [Suspect]
     Active Substance: TACROLIMUS
     Indication: Product used for unknown indication
     Dosage: TAKE 2 CAPSULES BY MOUTH IN THE MORNING AND 1 CAPSULE IN THE EVENING. HOLD PRIOR TO BLOOD DRAWS.
     Route: 048
     Dates: start: 20180807
  2. CENTRUM TAB SILVER [Concomitant]
  3. CLONIDINE [Concomitant]
     Active Substance: CLONIDINE
  4. FISH OIL [Concomitant]
     Active Substance: FISH OIL
  5. GLIPIZIDE [Concomitant]
     Active Substance: GLIPIZIDE
  6. IPRATROPIUM/SOL ALBUTER [Concomitant]
  7. METFORMIN [Concomitant]
  8. METOPROLOL [Concomitant]
     Active Substance: METOPROLOL
  9. MYCOPHENOLIC ACID [Concomitant]
     Active Substance: MYCOPHENOLIC ACID
  10. PROGRAF [Concomitant]

REACTIONS (1)
  - Pneumonia [None]
